FAERS Safety Report 18428467 (Version 1)
Quarter: 2020Q4

REPORT INFORMATION
  Report Type: Spontaneous
  Country: US (occurrence: US)
  Receive Date: 20201026
  Receipt Date: 20201026
  Transmission Date: 20210114
  Serious: No
  Sender: FDA-Public Use
  Company Number: US-BIOHAVEN PHARMACEUTICALS-2020BHV00207

PATIENT
  Age: 71 Year
  Sex: Female
  Weight: 68.03 kg

DRUGS (7)
  1. VITAMIN D [Concomitant]
     Active Substance: VITAMIN D NOS
  2. CIMETIDINE [Concomitant]
     Active Substance: CIMETIDINE
  3. NURTEC ODT [Suspect]
     Active Substance: RIMEGEPANT SULFATE
     Indication: HEADACHE
     Dosage: 75 MG, ONCE
     Route: 048
     Dates: start: 20200716
  4. MAGNESIUM [Concomitant]
     Active Substance: MAGNESIUM
  5. MELATONIN [Concomitant]
     Active Substance: MELATONIN
  6. OMEPRAZOLE. [Concomitant]
     Active Substance: OMEPRAZOLE
  7. AMITRIPTYLINE [Concomitant]
     Active Substance: AMITRIPTYLINE

REACTIONS (2)
  - Headache [Not Recovered/Not Resolved]
  - Drug ineffective for unapproved indication [Unknown]

NARRATIVE: CASE EVENT DATE: 20200716
